FAERS Safety Report 8469322-1 (Version None)
Quarter: 2012Q2

REPORT INFORMATION
  Report Type: 
  Country: None (occurrence: None)
  Receive Date: 20120620
  Receipt Date: 20120615
  Transmission Date: 20120825
  Serious: Yes (Death)
  Sender: FDA-Public Use
  Company Number: GER/UKI/12/0024702

PATIENT
  Age: 43 Year
  Sex: Female

DRUGS (5)
  1. RISPERIDONE [Suspect]
     Indication: SCHIZOPHRENIA
     Dosage: 1 MG, 2 IN 1 D, ORAL
     Route: 048
     Dates: start: 20120105, end: 20120106
  2. XENICAL [Concomitant]
  3. MIRTAZAPINE [Concomitant]
  4. ANOHEAL (DILTIAZEM HYDROCHLORIDE) [Concomitant]
  5. RISPERDAL CONSTA [Suspect]
     Indication: SCHIZOPHRENIA
     Dosage: 1 DOSAGE FORMS, 2 IN 1 WK
     Dates: end: 20120104

REACTIONS (1)
  - DEATH [None]
